FAERS Safety Report 17632227 (Version 1)
Quarter: 2020Q2

REPORT INFORMATION
  Report Type: Report from Study
  Country: None (occurrence: US)
  Receive Date: 20200406
  Receipt Date: 20200406
  Transmission Date: 20200713
  Serious: Yes (Other)
  Sender: FDA-Public Use
  Company Number: US-ABBVIE-19K-163-3151734-00

PATIENT
  Age: 79 Year
  Sex: Male

DRUGS (2)
  1. IMBRUVICA [Suspect]
     Active Substance: IBRUTINIB
     Indication: LYMPHOCYTIC LEUKAEMIA
     Dosage: 140 MG, QD
     Route: 048
     Dates: start: 20190610
  2. IMBRUVICA [Suspect]
     Active Substance: IBRUTINIB
     Dosage: 140 MG, QD
     Route: 048
     Dates: start: 20190610

REACTIONS (18)
  - Blood disorder [Unknown]
  - Incorrect dose administered [Unknown]
  - Oxygen saturation decreased [Unknown]
  - Arthralgia [Unknown]
  - Joint swelling [Recovered/Resolved]
  - Night sweats [Unknown]
  - Contusion [Unknown]
  - Fatigue [Unknown]
  - Pyrexia [Not Recovered/Not Resolved]
  - Musculoskeletal stiffness [Unknown]
  - Product dose omission [Unknown]
  - Myalgia [Unknown]
  - Arthritis [Recovered/Resolved]
  - Feeling hot [Unknown]
  - Haemorrhage [Unknown]
  - Fungal infection [Unknown]
  - Skin cancer [Unknown]
  - Cardiac disorder [Unknown]

NARRATIVE: CASE EVENT DATE: 20190610
